FAERS Safety Report 4491917-0 (Version None)
Quarter: 2004Q4

REPORT INFORMATION
  Report Type: 
  Country: None (occurrence: None)
  Receive Date: 20041101
  Receipt Date: 20041025
  Transmission Date: 20050328
  Serious: Yes (Other)
  Sender: FDA-Public Use
  Company Number: 2004-10-1707

PATIENT
  Sex: Male

DRUGS (5)
  1. PEG-INTRON [Suspect]
     Indication: HEPATITIS C
     Dosage: 150 MCG QWK SUBCUTANEOUS
     Route: 058
     Dates: start: 20040219, end: 20041008
  2. REBETOL [Suspect]
     Indication: HEPATITIS C
     Dosage: 1200 MG QD ORAL
     Route: 048
     Dates: start: 20040219, end: 20041008
  3. FLONASE [Concomitant]
  4. HYDROCHLOROTHIAZIDE [Concomitant]
  5. VIOXX [Concomitant]

REACTIONS (2)
  - AUTOIMMUNE HEPATITIS [None]
  - EOSINOPHIL COUNT INCREASED [None]
